FAERS Safety Report 8586635-3 (Version None)
Quarter: 2012Q3

REPORT INFORMATION
  Report Type: 
  Country: None (occurrence: None)
  Receive Date: 20120810
  Receipt Date: 20120808
  Transmission Date: 20120928
  Serious: Yes (Hospitalization)
  Sender: FDA-Public Use
  Company Number: US-ABBOTT-12P-163-0919192-00

PATIENT
  Sex: Female

DRUGS (5)
  1. ALENDRONATE SODIUM [Concomitant]
     Indication: BONE DISORDER
     Dosage: WEEKLY
  2. CREON [Concomitant]
     Indication: PANCREATIC DISORDER
     Dosage: 1 CAP BEFORE EACH MEAL
  3. HIGH CALCIUM WITH VITAMIN D SUPPLEMENT [Concomitant]
     Indication: PRODUCT USED FOR UNKNOWN INDICATION
     Dosage: DAILY
  4. HUMIRA [Suspect]
     Indication: CROHN'S DISEASE
     Dates: start: 20120323, end: 20120522
  5. MULTI-VITAMIN [Concomitant]
     Indication: VITAMIN SUPPLEMENTATION
     Dosage: DAILY

REACTIONS (10)
  - SUICIDAL IDEATION [None]
  - ANXIETY [None]
  - BIPOLAR DISORDER [None]
  - PANIC ATTACK [None]
  - CONFUSIONAL STATE [None]
  - INJECTION SITE HAEMATOMA [None]
  - PRODUCTIVE COUGH [None]
  - COUGH [None]
  - INJECTION SITE PAIN [None]
  - DEPRESSION [None]
